FAERS Safety Report 10003338 (Version 2)
Quarter: 2014Q2

REPORT INFORMATION
  Report Type: Spontaneous
  Country: IT (occurrence: IT)
  Receive Date: 20140312
  Receipt Date: 20140428
  Transmission Date: 20141212
  Serious: Yes (Hospitalization)
  Sender: FDA-Public Use
  Company Number: IT-ABBVIE-14P-083-1210488-00

PATIENT
  Age: 34 Year
  Sex: Female

DRUGS (4)
  1. KLACID [Suspect]
     Indication: TONSILLITIS
     Route: 048
     Dates: start: 20140127, end: 20140128
  2. CLAVULIN [Suspect]
     Indication: TONSILLITIS
     Dosage: DAILY DOSE: 2 GRAM; 875MG/125MG
     Route: 048
     Dates: start: 20140125, end: 20140128
  3. OKI [Concomitant]
     Indication: PRODUCT USED FOR UNKNOWN INDICATION
     Route: 048
  4. TACHIPIRINA [Concomitant]
     Indication: PRODUCT USED FOR UNKNOWN INDICATION
     Route: 048

REACTIONS (3)
  - Swollen tongue [Recovered/Resolved]
  - Pruritus [Recovered/Resolved]
  - Rash generalised [Recovered/Resolved]
